FAERS Safety Report 26002335 (Version 1)
Quarter: 2025Q4

REPORT INFORMATION
  Report Type: Spontaneous
  Country: JP (occurrence: JP)
  Receive Date: 20251105
  Receipt Date: 20251105
  Transmission Date: 20260118
  Serious: Yes (Hospitalization, Disabling, Other)
  Sender: MERCK SHARP & DOHME LLC
  Company Number: JP-009507513-2256497

PATIENT
  Age: 75 Year
  Sex: Female
  Weight: 38 kg

DRUGS (3)
  1. KEYTRUDA [Suspect]
     Active Substance: PEMBROLIZUMAB
     Indication: Squamous cell carcinoma of lung
     Dosage: 4 COURSES
     Route: 041
     Dates: start: 20240710, end: 20241023
  2. CARBOPLATIN [Suspect]
     Active Substance: CARBOPLATIN
     Indication: Squamous cell carcinoma of lung
     Route: 041
     Dates: start: 20240710, end: 20241030
  3. PACLITAXEL [Suspect]
     Active Substance: PACLITAXEL
     Indication: Squamous cell carcinoma of lung
     Route: 041
     Dates: start: 20240710, end: 20241030

REACTIONS (5)
  - Immune-mediated lung disease [Recovered/Resolved with Sequelae]
  - Chronic obstructive pulmonary disease [Recovering/Resolving]
  - Cough [Recovering/Resolving]
  - Productive cough [Recovering/Resolving]
  - Dyspnoea [Recovering/Resolving]

NARRATIVE: CASE EVENT DATE: 20241101
